FAERS Safety Report 5415417-6 (Version None)
Quarter: 2007Q3

REPORT INFORMATION
  Report Type: 
  Country: None (occurrence: None)
  Receive Date: 20070813
  Receipt Date: 20070813
  Transmission Date: 20080115
  Serious: No
  Sender: FDA-Public Use
  Company Number: None

PATIENT
  Age: 64 Year
  Sex: Male

DRUGS (1)
  1. PACLITAXEL [Suspect]
     Dosage: OTHER IV
     Route: 042
     Dates: start: 20070503, end: 20070503

REACTIONS (1)
  - RASH [None]
